FAERS Safety Report 8597838-6 (Version None)
Quarter: 2012Q3

REPORT INFORMATION
  Report Type: 
  Country: None (occurrence: None)
  Receive Date: 20120816
  Receipt Date: 20120814
  Transmission Date: 20120928
  Serious: Yes (Death, Hospitalization)
  Sender: FDA-Public Use
  Company Number: PHHY2012BR061725

PATIENT
  Sex: Female
  Weight: 58 kg

DRUGS (1)
  1. EXELON [Suspect]
     Indication: DEMENTIA ALZHEIMER'S TYPE
     Dosage: 1 DF, DAILY
     Route: 062
     Dates: start: 20120301

REACTIONS (6)
  - RENAL FAILURE [None]
  - EMPHYSEMA [None]
  - PNEUMONIA [None]
  - DEATH [None]
  - CONCOMITANT DISEASE AGGRAVATED [None]
  - CARDIAC ARREST [None]
